FAERS Safety Report 10370002 (Version 1)
Quarter: 2014Q3

REPORT INFORMATION
  Report Type: Report from Study
  Country: US (occurrence: US)
  Receive Date: 20140808
  Receipt Date: 20140808
  Transmission Date: 20150326
  Serious: Yes (Other)
  Sender: FDA-Public Use
  Company Number: US-BIOGENIDEC-2014BI077605

PATIENT
  Age: 48 Year
  Sex: Female
  Weight: 72 kg

DRUGS (8)
  1. TIZANIDINE [Concomitant]
     Active Substance: TIZANIDINE
     Indication: MUSCLE SPASMS
     Route: 048
  2. CITALOPRAM [Concomitant]
     Active Substance: CITALOPRAM HYDROBROMIDE
  3. TECFIDERA [Suspect]
     Active Substance: DIMETHYL FUMARATE
     Indication: MULTIPLE SCLEROSIS
     Route: 048
     Dates: start: 201301, end: 201405
  4. LACTOBAC CMB #3/FOS/PANTETHINE [Concomitant]
     Route: 048
  5. BUPROPRION [Concomitant]
     Active Substance: BUPROPION
  6. RIVAROXABAN [Concomitant]
     Active Substance: RIVAROXABAN
     Route: 048
  7. ASCORBIC ACID. [Concomitant]
     Active Substance: ASCORBIC ACID
     Route: 048
  8. ACETAMINOPHEN/HYDROCODONE [Concomitant]
     Active Substance: ACETAMINOPHEN\HYDROCODONE

REACTIONS (1)
  - Drug delivery device implantation [Unknown]

NARRATIVE: CASE EVENT DATE: 201302
